FAERS Safety Report 7475332-3 (Version None)
Quarter: 2011Q2

REPORT INFORMATION
  Report Type: 
  Country: None (occurrence: None)
  Receive Date: 20110512
  Receipt Date: 20110428
  Transmission Date: 20111010
  Serious: Yes (Other)
  Sender: FDA-Public Use
  Company Number: PT-JNJFOC-20110500274

PATIENT
  Sex: Female

DRUGS (1)
  1. REMICADE [Suspect]
     Indication: PRODUCT USED FOR UNKNOWN INDICATION
     Route: 042

REACTIONS (5)
  - FACE OEDEMA [None]
  - HEARING IMPAIRED [None]
  - INFUSION RELATED REACTION [None]
  - APPLICATION SITE REACTION [None]
  - SKIN REACTION [None]
